FAERS Safety Report 4554538-7 (Version None)
Quarter: 2005Q1

REPORT INFORMATION
  Report Type: 
  Country: None (occurrence: None)
  Receive Date: 20050114
  Receipt Date: 20031027
  Transmission Date: 20050727
  Serious: Yes (Hospitalization)
  Sender: FDA-Public Use
  Company Number: GXKR2003GB00523

PATIENT
  Age: 48 Year
  Sex: Male

DRUGS (4)
  1. ATENOLOL [Suspect]
     Indication: HYPERTENSION
     Dosage: 100 MG, QD,
  2. ALLOPURINOL [Suspect]
     Indication: GOUT
     Dosage: 100 MG, QD,
  3. ACETYLSALICYLIC ACID SRT [Suspect]
     Dosage: 75 MG, QD,
  4. IRBESARTAN [Suspect]
     Indication: HYPERTENSION
     Dosage: 75 MG, QD,

REACTIONS (2)
  - DIARRHOEA [None]
  - RENAL FAILURE ACUTE [None]
